FAERS Safety Report 6222124-9 (Version None)
Quarter: 2009Q2

REPORT INFORMATION
  Report Type: 
  Country: None (occurrence: None)
  Receive Date: 20090609
  Receipt Date: 20090527
  Transmission Date: 20091009
  Serious: Yes (Other)
  Sender: FDA-Public Use
  Company Number: 1-18617745

PATIENT
  Age: 49 Year
  Sex: Female
  Weight: 54.4316 kg

DRUGS (2)
  1. SOLODYN [Suspect]
     Indication: ROSACEA
     Dosage: 90 MG ONCE DAILY, ORAL
     Route: 048
     Dates: start: 20090427, end: 20090518
  2. ZOVIRAX [Concomitant]

REACTIONS (6)
  - CHILLS [None]
  - DIARRHOEA [None]
  - FATIGUE [None]
  - MYALGIA [None]
  - PLEURAL EFFUSION [None]
  - SERUM SICKNESS [None]
